FAERS Safety Report 13813528 (Version 3)
Quarter: 2017Q3

REPORT INFORMATION
  Report Type: Spontaneous
  Country: US (occurrence: US)
  Receive Date: 20170731
  Receipt Date: 20170810
  Transmission Date: 20171127
  Serious: No
  Sender: FDA-Public Use
  Company Number: US-AMGEN-USASP2017112616

PATIENT
  Age: 50 Year
  Sex: Female

DRUGS (1)
  1. ENBREL [Suspect]
     Active Substance: ETANERCEPT
     Indication: ANKYLOSING SPONDYLITIS
     Dosage: 50 MG, QWK
     Route: 065
     Dates: start: 201507

REACTIONS (11)
  - Muscle spasms [Unknown]
  - Pain [Unknown]
  - Paraesthesia [Unknown]
  - Cortisol decreased [Unknown]
  - Neuropathy peripheral [Unknown]
  - Hypoaesthesia [Unknown]
  - Myalgia [Unknown]
  - Pain in extremity [Unknown]
  - Infectious mononucleosis [Unknown]
  - Fatigue [Unknown]
  - Tooth infection [Unknown]
